FAERS Safety Report 8222827-0 (Version None)
Quarter: 2012Q1

REPORT INFORMATION
  Report Type: 
  Country: None (occurrence: None)
  Receive Date: 20120320
  Receipt Date: 20120320
  Transmission Date: 20120608
  Serious: Yes (Other)
  Sender: FDA-Public Use
  Company Number: CN-BAYER-2012-026793

PATIENT
  Sex: Female

DRUGS (2)
  1. PLAVIX [Concomitant]
  2. ASPIRIN [Suspect]
     Indication: ANTICOAGULANT THERAPY
     Dosage: 1 DF, QD

REACTIONS (2)
  - CORONARY ARTERY STENOSIS [None]
  - IN-STENT CORONARY ARTERY RESTENOSIS [None]
